FAERS Safety Report 10034253 (Version 1)
Quarter: 2014Q1

REPORT INFORMATION
  Report Type: Spontaneous
  Country: US (occurrence: None)
  Receive Date: 20140324
  Receipt Date: 20140324
  Transmission Date: 20141002
  Serious: Yes (Other)
  Sender: FDA-Public Use
  Company Number: None

PATIENT
  Age: 54 Year
  Sex: Female

DRUGS (1)
  1. SOMATULINE [Suspect]
     Dosage: 90MG SQ EVERY 6 WEEKS EVERY 6 WEEKS SQ
     Route: 058
     Dates: start: 20121018, end: 20140315

REACTIONS (4)
  - Visual impairment [None]
  - Muscle spasms [None]
  - Haemorrhage [None]
  - Swelling face [None]
